FAERS Safety Report 4945737-0 (Version None)
Quarter: 2006Q1

REPORT INFORMATION
  Report Type: 
  Country: None (occurrence: None)
  Receive Date: 20060117
  Receipt Date: 20060413
  Transmission Date: 20060701
  Serious: Yes (Hospitalization)
  Sender: FDA-Public Use
  Company Number: A03200501129

PATIENT
  Age: 84 Year
  Sex: Female
  Weight: 87.98 kg

DRUGS (5)
  1. PLAVIX [Suspect]
     Indication: CORONARY ARTERIAL STENT INSERTION
     Dosage: 75 MG QD ORAL
     Route: 048
     Dates: start: 20040701, end: 20050801
  2. CHOLESTEROL MEDICATION [Concomitant]
  3. PRAVASTATIN SODIUM [Concomitant]
  4. HIGH BLOOD PRESSURE MEDICATION [Concomitant]
  5. THYROID TAB [Concomitant]

REACTIONS (1)
  - EPISTAXIS [None]
